FAERS Safety Report 5610577-6 (Version None)
Quarter: 2008Q1

REPORT INFORMATION
  Report Type: 
  Country: None (occurrence: None)
  Receive Date: 20080131
  Receipt Date: 20080131
  Transmission Date: 20080703
  Serious: Yes (Other)
  Sender: FDA-Public Use
  Company Number: None

PATIENT
  Sex: Male
  Weight: 72.5755 kg

DRUGS (1)
  1. METOPROLOL SUCCINATE EXTENDED RELEASE [Suspect]
     Indication: BLOOD PRESSURE
     Dosage: 50MG ONCE DAILY PO
     Route: 048
     Dates: start: 20071105, end: 20071224

REACTIONS (2)
  - DYSPNOEA EXERTIONAL [None]
  - PHARMACEUTICAL PRODUCT COMPLAINT [None]
